FAERS Safety Report 20110939 (Version 1)
Quarter: 2021Q4

REPORT INFORMATION
  Report Type: Spontaneous
  Country: None (occurrence: PT)
  Receive Date: 20211124
  Receipt Date: 20211124
  Transmission Date: 20220303
  Serious: Yes (Hospitalization, Other)
  Sender: FDA-Public Use
  Company Number: PT-Canton Laboratories, LLC-2122303

PATIENT
  Age: 37 Year
  Sex: Female

DRUGS (3)
  1. NAPROSYN [Suspect]
     Active Substance: NAPROXEN
     Indication: Intentional overdose
     Route: 065
  2. DIETARY SUPPLEMENT [Suspect]
     Active Substance: DIETARY SUPPLEMENT
  3. CYCLOBENZAPRINE [Suspect]
     Active Substance: CYCLOBENZAPRINE

REACTIONS (5)
  - Thrombocytopenia [Not Recovered/Not Resolved]
  - Toxicity to various agents [Unknown]
  - Intentional overdose [Unknown]
  - Potentiating drug interaction [Unknown]
  - Haemolytic anaemia [Recovered/Resolved]
